FAERS Safety Report 8042078-2 (Version None)
Quarter: 2012Q1

REPORT INFORMATION
  Report Type: 
  Country: None (occurrence: None)
  Receive Date: 20120112
  Receipt Date: 20120110
  Transmission Date: 20120608
  Serious: Yes (Life-Threatening, Hospitalization, Other)
  Sender: FDA-Public Use
  Company Number: GB-PFIZER INC-2011315711

PATIENT
  Age: 52 Year
  Sex: Male

DRUGS (9)
  1. ISOSORBIDE MONONITRATE [Suspect]
     Dosage: 800 MG, SINGLE
     Route: 065
  2. DILTIAZEM HCL [Suspect]
     Dosage: 3900 MG, SINGLE
     Route: 065
  3. SIMVASTATIN [Concomitant]
  4. OMEPRAZOLE [Concomitant]
  5. NICORANDIL [Suspect]
     Dosage: 120 MG, SINGLE
     Route: 065
  6. ASPIRIN [Concomitant]
  7. RAMIPRIL [Suspect]
     Dosage: 140 MG, SINGLE
     Route: 065
  8. CITALOPRAM [Concomitant]
  9. TAMSULOSIN [Concomitant]

REACTIONS (4)
  - OVERDOSE [None]
  - SOMNOLENCE [None]
  - ACUTE PRERENAL FAILURE [None]
  - HYPOTENSION [None]
